FAERS Safety Report 8615457-X (Version None)
Quarter: 2012Q3

REPORT INFORMATION
  Report Type: 
  Country: None (occurrence: None)
  Receive Date: 20120823
  Receipt Date: 20120813
  Transmission Date: 20120928
  Serious: Yes (Other)
  Sender: FDA-Public Use
  Company Number: CO-ELI_LILLY_AND_COMPANY-CO201208004573

PATIENT
  Age: 67 Year
  Sex: Female

DRUGS (3)
  1. ENALAPRIL MALEATE [Concomitant]
     Dosage: UNK, UNKNOWN
  2. LOSARTAN POTASSIUM [Concomitant]
     Dosage: UNK, UNKNOWN
  3. HUMULIN N [Suspect]
     Indication: TYPE 2 DIABETES MELLITUS
     Dosage: 20 U, QD
     Route: 058
     Dates: start: 20120601

REACTIONS (2)
  - SKIN DISCOLOURATION [None]
  - INFLAMMATION [None]
